FAERS Safety Report 6813299-9 (Version None)
Quarter: 2010Q3

REPORT INFORMATION
  Report Type: 
  Country: None (occurrence: None)
  Receive Date: 20100701
  Receipt Date: 20100624
  Transmission Date: 20110219
  Serious: Yes (Hospitalization, Other)
  Sender: FDA-Public Use
  Company Number: US-PFIZER INC-2010067551

PATIENT
  Sex: Female

DRUGS (2)
  1. TIKOSYN [Suspect]
     Indication: ATRIAL FIBRILLATION
     Dosage: 125 UG, 2X/DAY
     Route: 048
  2. HYDROCHLOROTHIAZIDE [Suspect]
     Dosage: UNK

REACTIONS (2)
  - BACK PAIN [None]
  - INFECTION [None]
